FAERS Safety Report 4973150-9 (Version None)
Quarter: 2006Q2

REPORT INFORMATION
  Report Type: 
  Country: None (occurrence: None)
  Receive Date: 20060414
  Receipt Date: 20050928
  Transmission Date: 20061013
  Serious: Yes (Death)
  Sender: FDA-Public Use
  Company Number: US-MERCK-0509USA04940

PATIENT
  Age: 56 Year
  Sex: Female

DRUGS (17)
  1. VIOXX [Suspect]
     Route: 048
     Dates: start: 20020121
  2. PREDNISONE [Concomitant]
     Route: 048
     Dates: start: 20040202
  3. PREDNISONE [Concomitant]
     Route: 048
  4. LIPITOR [Concomitant]
     Route: 048
     Dates: start: 20020121
  5. IMDUR [Concomitant]
     Route: 048
     Dates: start: 20020121
  6. PREMARIN [Concomitant]
     Route: 048
     Dates: start: 20020121
  7. PREMARIN [Concomitant]
     Route: 048
  8. METHOTREXATE [Concomitant]
     Route: 048
     Dates: start: 20020121
  9. METHOTREXATE [Concomitant]
     Route: 048
  10. FOLIC ACID [Concomitant]
     Route: 048
     Dates: start: 20020121
  11. NEURONTIN [Concomitant]
     Route: 048
     Dates: start: 20020121
  12. LOPRESSOR [Concomitant]
     Route: 048
     Dates: start: 20040202
  13. LOPRESSOR [Concomitant]
     Route: 048
     Dates: start: 20020121
  14. AMITRIPTYLIN [Concomitant]
     Route: 048
     Dates: start: 20020121
  15. ASPIRIN [Concomitant]
     Route: 048
     Dates: start: 20020121
  16. HYDROXYCHLOROQUINE SULFATE [Concomitant]
     Route: 048
     Dates: start: 20020121
  17. HYDROXYCHLOROQUINE SULFATE [Concomitant]
     Route: 048

REACTIONS (15)
  - ACUTE MYOCARDIAL INFARCTION [None]
  - ANOXIC ENCEPHALOPATHY [None]
  - CANDIDIASIS [None]
  - CARDIAC ARREST [None]
  - COMA [None]
  - DIARRHOEA [None]
  - DYSPNOEA [None]
  - HALLUCINATION [None]
  - HEADACHE [None]
  - HYPOGLYCAEMIA [None]
  - LOSS OF CONSCIOUSNESS [None]
  - MUSCLE ATROPHY [None]
  - MYOCARDIAL INFARCTION [None]
  - WEIGHT DECREASED [None]
  - WOUND [None]
